FAERS Safety Report 4295395-6 (Version None)
Quarter: 2004Q1

REPORT INFORMATION
  Report Type: 
  Country: None (occurrence: None)
  Receive Date: 20040216
  Receipt Date: 20030714
  Transmission Date: 20041129
  Serious: No
  Sender: FDA-Public Use
  Company Number: US-GLAXOSMITHKLINE-A0417163A

PATIENT
  Age: 26 Year
  Sex: Female

DRUGS (6)
  1. LAMICTAL [Suspect]
     Dosage: 125MG TWICE PER DAY
     Route: 048
     Dates: start: 20030301
  2. DEPAKOTE [Concomitant]
     Dates: start: 20030301
  3. TOPAMAX [Concomitant]
  4. LITHIUM CARBONATE [Concomitant]
  5. WELLBUTRIN [Concomitant]
  6. CYTOMEL [Concomitant]

REACTIONS (3)
  - PRURITUS [None]
  - RASH ERYTHEMATOUS [None]
  - RASH PAPULAR [None]
